FAERS Safety Report 11320989 (Version 1)
Quarter: 2015Q3

REPORT INFORMATION
  Report Type: Spontaneous
  Country: US (occurrence: None)
  Receive Date: 20150728
  Receipt Date: 20150728
  Transmission Date: 20151125
  Serious: No
  Sender: FDA-Public Use
  Company Number: None

PATIENT
  Age: 16 Year
  Sex: Male

DRUGS (1)
  1. GENOTROPIN [Suspect]
     Active Substance: SOMATROPIN
     Route: 058
     Dates: start: 20090924

REACTIONS (9)
  - Crying [None]
  - Dry mouth [None]
  - Mood altered [None]
  - Depression [None]
  - Screaming [None]
  - Muscle twitching [None]
  - Foaming at mouth [None]
  - Vomiting [None]
  - Insomnia [None]
